FAERS Safety Report 7652546-0 (Version None)
Quarter: 2011Q3

REPORT INFORMATION
  Report Type: 
  Country: None (occurrence: None)
  Receive Date: 20110801
  Receipt Date: 20110801
  Transmission Date: 20111222
  Serious: Yes (Other)
  Sender: FDA-Public Use
  Company Number: None

PATIENT
  Age: 48 Year
  Sex: Female
  Weight: 50.8029 kg

DRUGS (1)
  1. XOLAIR [Suspect]
     Indication: ASTHMA
     Dosage: XOLAIR (OMALIZUMAB) Q4WEEKS SUBCUTANEOUS
     Route: 058
     Dates: start: 20031111, end: 20110711

REACTIONS (2)
  - BLOOD IMMUNOGLOBULIN G DECREASED [None]
  - MONOCLONAL GAMMOPATHY [None]
